FAERS Safety Report 24418992 (Version 2)
Quarter: 2024Q4

REPORT INFORMATION
  Report Type: Spontaneous
  Country: US (occurrence: US)
  Receive Date: 20241009
  Receipt Date: 20241014
  Transmission Date: 20250115
  Serious: Yes (Other)
  Sender: PFIZER
  Company Number: US-PFIZER INC-202400271702

PATIENT
  Age: 53 Year
  Sex: Female

DRUGS (1)
  1. XELJANZ [Suspect]
     Active Substance: TOFACITINIB CITRATE
     Indication: Rheumatoid arthritis
     Dosage: 5MG - TAKE 1 TABLET TWICE A DAY IN THE MORNING AND AT BEDTIME. DO NOT CRUSH, CHEW, OR SPLIT
     Route: 048

REACTIONS (1)
  - Myocardial infarction [Unknown]
